FAERS Safety Report 24685007 (Version 3)
Quarter: 2024Q4

REPORT INFORMATION
  Report Type: Spontaneous
  Country: US (occurrence: US)
  Receive Date: 20241202
  Receipt Date: 20241206
  Transmission Date: 20250115
  Serious: No
  Sender: ROCHE
  Company Number: US-ROCHE-10000140289

PATIENT

DRUGS (1)
  1. ACTEMRA [Suspect]
     Active Substance: TOCILIZUMAB
     Indication: Product used for unknown indication
     Route: 058
     Dates: start: 20240910

REACTIONS (6)
  - Device difficult to use [Unknown]
  - Incorrect route of product administration [Unknown]
  - Device use issue [Unknown]
  - Injection site discharge [Unknown]
  - Device malfunction [Unknown]
  - No adverse event [Unknown]
